FAERS Safety Report 5166954-3 (Version None)
Quarter: 2006Q4

REPORT INFORMATION
  Report Type: 
  Country: None (occurrence: None)
  Receive Date: 20061207
  Receipt Date: 20061204
  Transmission Date: 20070319
  Serious: Yes (Life-Threatening, Hospitalization)
  Sender: FDA-Public Use
  Company Number: FI-SANOFI-SYNTHELABO-F01200602459

PATIENT
  Sex: Male

DRUGS (8)
  1. MINITRAN [Concomitant]
     Indication: CARDIAC DISORDER
     Dosage: 10 MG
     Route: 062
  2. PRIMASPAN [Concomitant]
     Indication: CARDIAC DISORDER
     Dosage: GASTRIC RESISTENT TABLET 100 MG
     Route: 048
  3. LIPCUT [Concomitant]
     Indication: BLOOD CHOLESTEROL
     Dosage: 40 MG
     Route: 048
  4. SPESICOR [Concomitant]
     Indication: CARDIAC DISORDER
     Dosage: EXTENDED RELEASE TABLET 95 MG
     Route: 048
  5. DIFORMIN RETARD [Concomitant]
     Indication: DIABETES MELLITUS
     Dosage: EXTENDED RELEASE TABLET 2 G
     Route: 048
  6. AMARYL [Concomitant]
     Indication: DIABETES MELLITUS
     Dosage: 6 MG
     Route: 048
  7. ELOXATIN [Suspect]
     Indication: RECTAL CANCER
     Route: 042
     Dates: start: 20060927, end: 20060927
  8. NITROGLYCERIN [Concomitant]
     Indication: CARDIAC DISORDER
     Dosage: 0.5 MG
     Route: 060

REACTIONS (4)
  - BLOOD PRESSURE INCREASED [None]
  - CHEST DISCOMFORT [None]
  - ECG SIGNS OF MYOCARDIAL ISCHAEMIA [None]
  - MYOCARDIAL INFARCTION [None]
